FAERS Safety Report 15396956 (Version 1)
Quarter: 2018Q3

REPORT INFORMATION
  Report Type: Spontaneous
  Country: AT (occurrence: AT)
  Receive Date: 20180918
  Receipt Date: 20180918
  Transmission Date: 20181010
  Serious: Yes (Other)
  Sender: FDA-Public Use
  Company Number: AT-ROCHE-2183686

PATIENT
  Age: 51 Year
  Sex: Female

DRUGS (4)
  1. AVASTIN [Suspect]
     Active Substance: BEVACIZUMAB
     Indication: OVARIAN CANCER
     Dosage: 1ST LINE CHEMOTHERAPY (6 CYCLES AVASTIN/CARBOTAXOL
     Route: 065
     Dates: start: 20140208, end: 20140616
  2. CARBOPLATIN. [Concomitant]
     Active Substance: CARBOPLATIN
     Indication: OVARIAN CANCER
     Dosage: 1ST LINE CHEMOTHERAPY (6 CYCLES AVASTIN/CARBOTAXOL
     Route: 065
     Dates: start: 20140208, end: 20140616
  3. GCSF 30 (UNK INGREDIENTS) [Concomitant]
     Indication: ASCITES
     Dosage: 1ST LINE CHEMOTHERAPY (6 CYCLES AVASTIN/CARBOTAXOL ;ONGOING: NO
     Route: 065
     Dates: start: 20140208, end: 20140616
  4. TAXOL [Concomitant]
     Active Substance: PACLITAXEL
     Indication: OVARIAN CANCER
     Dosage: 1ST LINE CHEMOTHERAPY (6 CYCLES AVASTIN/CARBOTAXOL ;ONGOING: NO
     Route: 065
     Dates: start: 20140208, end: 20140616

REACTIONS (5)
  - Ovarian cancer recurrent [Unknown]
  - Cancer surgery [Unknown]
  - Colectomy [Unknown]
  - Ascites [Unknown]
  - Lymphadenopathy [Unknown]

NARRATIVE: CASE EVENT DATE: 20160215
